FAERS Safety Report 12071009 (Version 2)
Quarter: 2016Q1

REPORT INFORMATION
  Report Type: Spontaneous
  Country: IT (occurrence: IT)
  Receive Date: 20160211
  Receipt Date: 20160217
  Transmission Date: 20160526
  Serious: Yes (Hospitalization)
  Sender: FDA-Public Use
  Company Number: IT-PFIZER INC-2016072201

PATIENT
  Age: 48 Year
  Sex: Female

DRUGS (5)
  1. VALPROIC ACID. [Suspect]
     Active Substance: VALPROIC ACID
     Dosage: 1500 MG, DAILY
     Route: 048
     Dates: start: 20160104, end: 20160104
  2. CITALOPRAM EG [Suspect]
     Active Substance: CITALOPRAM HYDROBROMIDE
     Dosage: 100 MG, TOTAL
     Route: 048
     Dates: start: 20160104, end: 20160104
  3. ABILIFY [Suspect]
     Active Substance: ARIPIPRAZOLE
     Dosage: 5 DF, DAILY
     Route: 048
     Dates: start: 20160104, end: 20160104
  4. SERTRALINE HCL [Suspect]
     Active Substance: SERTRALINE HYDROCHLORIDE
     Dosage: 250 MG, TOTAL
     Route: 048
     Dates: start: 20160104, end: 20160104
  5. OLANZAPINE. [Suspect]
     Active Substance: OLANZAPINE
     Dosage: 25 MG, DAILY
     Route: 048
     Dates: start: 20160104, end: 20160104

REACTIONS (4)
  - Hypocalcaemia [Unknown]
  - Agitation [Unknown]
  - Intentional self-injury [Unknown]
  - Poisoning [Unknown]

NARRATIVE: CASE EVENT DATE: 20160104
